FAERS Safety Report 5313861-9 (Version None)
Quarter: 2007Q2

REPORT INFORMATION
  Report Type: 
  Country: None (occurrence: None)
  Receive Date: 20070501
  Receipt Date: 20070420
  Transmission Date: 20071010
  Serious: Yes (Other)
  Sender: FDA-Public Use
  Company Number: FR-GLAXOSMITHKLINE-B0468572A

PATIENT
  Age: 27 Year
  Sex: Female

DRUGS (1)
  1. ZYBAN [Suspect]
     Dosage: 150MG VARIABLE DOSE
     Route: 048

REACTIONS (5)
  - ANXIETY DISORDER [None]
  - BLOOD PRESSURE INCREASED [None]
  - CRYING [None]
  - DELIRIUM [None]
  - TREMOR [None]
